FAERS Safety Report 9034888 (Version 2)
Quarter: 2013Q1

REPORT INFORMATION
  Report Type: Spontaneous
  Country: ES (occurrence: None)
  Receive Date: 20130116
  Receipt Date: 20130214
  Transmission Date: 20140127
  Serious: Yes (Hospitalization)
  Sender: FDA-Public Use
  Company Number: AUR-APL-2013-00235

PATIENT
  Age: 18 Year
  Sex: Female

DRUGS (1)
  1. LEVOFLOXACIN (LEVOFLOXACIN) [Suspect]
     Indication: URINARY TRACT INFECTION

REACTIONS (9)
  - Asthenia [None]
  - Eyelid ptosis [None]
  - Dropped head syndrome [None]
  - Dysarthria [None]
  - Dysphagia [None]
  - Respiratory arrest [None]
  - Poisoning [None]
  - Drug abuse [None]
  - Myasthenia gravis crisis [None]
